FAERS Safety Report 8667778 (Version 3)
Quarter: 2012Q4

REPORT INFORMATION
  Report Type: 
  Country: US (occurrence: US)
  Receive Date: 20120717
  Receipt Date: 20120926
  Transmission Date: 20130627
  Serious: Yes (Other)
  Sender: FDA-Public Use
  Company Number: US-RB-042113-12

PATIENT
  Sex: Male
  Weight: 72.5 kg

DRUGS (3)
  1. DELSYM [Suspect]
     Indication: COUGH
     Dosage: Used product not more than 20ml in 24 hours. Last dose of the product was of 10ml
     Route: 048
     Dates: start: 201207
  2. AZITHROMYCIN [Concomitant]
     Indication: PNEUMONIA PRIMARY ATYPICAL
  3. ALBUTERAL [Concomitant]
     Indication: PNEUMONIA PRIMARY ATYPICAL

REACTIONS (16)
  - Hallucination [Recovered/Resolved]
  - Delirium [Recovered/Resolved]
  - Feeling abnormal [Recovered/Resolved]
  - Thinking abnormal [Recovered/Resolved]
  - Inappropriate affect [Recovered/Resolved]
  - Mental status changes [Recovered/Resolved]
  - Tremor [Recovered/Resolved]
  - Paraesthesia [Recovered/Resolved]
  - Neck pain [Recovered/Resolved]
  - Musculoskeletal discomfort [Recovered/Resolved]
  - Drug interaction [Recovered/Resolved]
  - Euphoric mood [Recovered/Resolved]
  - Crying [None]
  - Feeling drunk [None]
  - Hallucination, visual [None]
  - Encephalitis [None]
